FAERS Safety Report 5374639-3 (Version None)
Quarter: 2007Q2

REPORT INFORMATION
  Report Type: 
  Country: None (occurrence: None)
  Receive Date: 20070627
  Receipt Date: 20070627
  Transmission Date: 20071010
  Serious: No
  Sender: FDA-Public Use
  Company Number: None

PATIENT
  Age: 54 Year
  Sex: Male

DRUGS (2)
  1. NAPROXEN [Suspect]
     Indication: LUMBAR SPINAL STENOSIS
     Dosage: 500MG BID PO
     Route: 048
     Dates: start: 20070308, end: 20070609
  2. NAPROXEN [Suspect]
     Indication: PAIN
     Dosage: 500MG BID PO
     Route: 048
     Dates: start: 20070308, end: 20070609

REACTIONS (1)
  - DYSPEPSIA [None]
